FAERS Safety Report 9888423 (Version 2)
Quarter: 2014Q2

REPORT INFORMATION
  Report Type: Spontaneous
  Country: FR (occurrence: FR)
  Receive Date: 20140211
  Receipt Date: 20140613
  Transmission Date: 20141212
  Serious: Yes (Hospitalization, Other)
  Sender: FDA-Public Use
  Company Number: FR-ELI_LILLY_AND_COMPANY-FR201401011631

PATIENT
  Age: 45 Year
  Sex: Male

DRUGS (2)
  1. ZYPADHERA [Suspect]
     Indication: PRODUCT USED FOR UNKNOWN INDICATION
     Dosage: 300 MG, MONTHLY (1/M)
     Route: 065
     Dates: start: 2012
  2. HALDOL DECANOAS [Concomitant]
     Indication: PRODUCT USED FOR UNKNOWN INDICATION
     Dosage: 150 MG, MONTHLY (1/M)
     Route: 065

REACTIONS (9)
  - Speech disorder [Unknown]
  - Motor dysfunction [Unknown]
  - Muscular weakness [Unknown]
  - Dry mouth [Unknown]
  - Hunger [Unknown]
  - Dysstasia [Unknown]
  - Dyskinesia [Unknown]
  - Tachycardia [Unknown]
  - Hypertension [Unknown]
